FAERS Safety Report 6745021-9 (Version None)
Quarter: 2010Q2

REPORT INFORMATION
  Report Type: 
  Country: None (occurrence: None)
  Receive Date: 20100527
  Receipt Date: 20100521
  Transmission Date: 20101027
  Serious: Yes (Death, Hospitalization)
  Sender: FDA-Public Use
  Company Number: US-GILEAD-2009-0022328

PATIENT
  Sex: Male
  Weight: 69.5 kg

DRUGS (10)
  1. LETAIRIS [Suspect]
     Indication: PULMONARY ARTERIAL HYPERTENSION
     Route: 048
  2. LISINOPRIL [Concomitant]
  3. SPIRIVA [Concomitant]
  4. NAMENDA [Concomitant]
  5. EXELON [Concomitant]
  6. OSTEO BI-FLEX [Concomitant]
  7. CALTRATE PLUS D [Concomitant]
  8. ASPIRIN [Concomitant]
  9. CENTRUM SILVER [Concomitant]
  10. FISH OIL [Concomitant]

REACTIONS (4)
  - DYSPNOEA [None]
  - FATIGUE [None]
  - OEDEMA [None]
  - PULMONARY HYPERTENSION [None]
